FAERS Safety Report 8510391-8 (Version None)
Quarter: 2012Q3

REPORT INFORMATION
  Report Type: 
  Country: None (occurrence: None)
  Receive Date: 20120713
  Receipt Date: 20120705
  Transmission Date: 20120928
  Serious: Yes (Hospitalization)
  Sender: FDA-Public Use
  Company Number: FR-RB-042211-12

PATIENT
  Sex: Male

DRUGS (1)
  1. SUBUTEX [Suspect]
     Indication: PRODUCT USED FOR UNKNOWN INDICATION
     Dosage: 16-20 MG DAILY
     Route: 042
     Dates: start: 20020101

REACTIONS (4)
  - VASCULITIS [None]
  - LYMPHOEDEMA [None]
  - SKIN WOUND [None]
  - INTENTIONAL DRUG MISUSE [None]
